FAERS Safety Report 8928977 (Version 1)
Quarter: 2012Q4

REPORT INFORMATION
  Report Type: Spontaneous
  Country: US (occurrence: None)
  Receive Date: 20121126
  Receipt Date: 20121126
  Transmission Date: 20130627
  Serious: Yes (Other)
  Sender: FDA-Public Use
  Company Number: None

PATIENT
  Age: 68 Year
  Sex: Female
  Weight: 52.62 kg

DRUGS (1)
  1. DEXILANT [Suspect]
     Indication: ACID REFLUX (ESOPHAGEAL)
     Dates: start: 20120925, end: 20121005

REACTIONS (3)
  - Palpitations [None]
  - Cough [None]
  - Alopecia [None]
